FAERS Safety Report 8546275-9 (Version None)
Quarter: 2012Q3

REPORT INFORMATION
  Report Type: 
  Country: None (occurrence: None)
  Receive Date: 20120727
  Receipt Date: 20120717
  Transmission Date: 20120928
  Serious: Yes (Hospitalization, Other)
  Sender: FDA-Public Use
  Company Number: US-009507513-1009USA05574

PATIENT

DRUGS (7)
  1. CALCIUM CARBONATE [Concomitant]
  2. PREMARIN [Concomitant]
     Dosage: 0.9 MG, UNK
     Dates: start: 19900101, end: 20030430
  3. PREMARIN [Concomitant]
     Dosage: 0.625 MG, UNK
     Dates: start: 20030430
  4. FOSAMAX [Suspect]
     Indication: OSTEOPOROSIS
     Route: 048
     Dates: start: 19950101, end: 20010112
  5. FOSAMAX [Suspect]
     Dosage: 70 MG, QW
     Route: 048
     Dates: start: 20010112, end: 20080421
  6. FOSAMAX [Suspect]
     Dosage: 70 MG, UNK
     Route: 048
     Dates: start: 20080721, end: 20090929
  7. FOSAMAX PLUS D [Suspect]
     Indication: OSTEOPOROSIS
     Route: 048
     Dates: start: 20061102

REACTIONS (31)
  - FEMUR FRACTURE [None]
  - FIBROCYSTIC BREAST DISEASE [None]
  - VAGINAL DISORDER [None]
  - HAEMORRHOIDS [None]
  - HYPERCALCAEMIA [None]
  - TOOTH DISORDER [None]
  - PULPITIS DENTAL [None]
  - PAIN IN EXTREMITY [None]
  - ABDOMINAL PAIN [None]
  - LOW TURNOVER OSTEOPATHY [None]
  - DUODENITIS [None]
  - RESORPTION BONE INCREASED [None]
  - BRONCHITIS [None]
  - NODAL OSTEOARTHRITIS [None]
  - BONE PAIN [None]
  - BACK PAIN [None]
  - DIVERTICULUM [None]
  - TOOTH FRACTURE [None]
  - LIGAMENT SPRAIN [None]
  - PERIODONTITIS [None]
  - OSTEOARTHRITIS [None]
  - ARTHROPATHY [None]
  - TENOSYNOVITIS [None]
  - BLOOD CHOLESTEROL INCREASED [None]
  - GASTRITIS [None]
  - OSTEOPENIA [None]
  - RECTAL POLYP [None]
  - APICAL GRANULOMA [None]
  - HYPERTENSION [None]
  - ATROPHIC VULVOVAGINITIS [None]
  - DENTAL NECROSIS [None]
